FAERS Safety Report 4852035-2 (Version None)
Quarter: 2005Q4

REPORT INFORMATION
  Report Type: 
  Country: None (occurrence: None)
  Receive Date: 20051209
  Receipt Date: 20051116
  Transmission Date: 20060501
  Serious: Yes (Hospitalization)
  Sender: FDA-Public Use
  Company Number: 2005BH002988

PATIENT
  Age: 22 Year
  Sex: Female

DRUGS (6)
  1. SUPRANE [Suspect]
     Indication: ANAESTHESIA
  2. PROPOFOL [Concomitant]
  3. MIDAZOLAM [Concomitant]
  4. FENTANYL [Concomitant]
  5. ROCURONIUM [Concomitant]
  6. LIDOCAINE [Concomitant]

REACTIONS (1)
  - HEPATITIS [None]
